FAERS Safety Report 17547609 (Version 1)
Quarter: 2020Q1

REPORT INFORMATION
  Report Type: Spontaneous
  Country: US (occurrence: US)
  Receive Date: 20200316
  Receipt Date: 20200316
  Transmission Date: 20200409
  Serious: Yes (Other)
  Sender: FDA-Public Use
  Company Number: US-JAZZ-2020-US-003539

PATIENT
  Age: 51 Year
  Sex: Female

DRUGS (11)
  1. CLOZAPINE. [Suspect]
     Active Substance: CLOZAPINE
     Dosage: 100 MG IN MORNING
     Route: 048
  2. BUPROPION. [Suspect]
     Active Substance: BUPROPION
     Indication: WEIGHT INCREASED
  3. LURASIDONE [Concomitant]
     Active Substance: LURASIDONE
     Indication: SCHIZOAFFECTIVE DISORDER
     Dosage: 160 MG, DAILY
     Route: 048
  4. CLOZAPINE. [Suspect]
     Active Substance: CLOZAPINE
     Dosage: 400 MG IN EVENING
     Route: 048
  5. CLOZAPINE. [Suspect]
     Active Substance: CLOZAPINE
     Indication: SCHIZOAFFECTIVE DISORDER
     Dosage: 900 MG
     Route: 048
  6. CLOZAPINE. [Suspect]
     Active Substance: CLOZAPINE
     Dosage: 100 MG IN MORNING
     Route: 048
  7. CLOZAPINE. [Suspect]
     Active Substance: CLOZAPINE
     Dosage: 450 MG IN MORNING
     Route: 048
  8. VENLAFAXINE [Concomitant]
     Active Substance: VENLAFAXINE HYDROCHLORIDE
     Indication: SCHIZOAFFECTIVE DISORDER
     Dosage: 375 MG, DAILY
     Route: 048
  9. CLOZAPINE. [Suspect]
     Active Substance: CLOZAPINE
     Dosage: INCREASED DOSE BY 100 MG/DAY (1000 MG/DAY)
     Route: 048
  10. CLOZAPINE. [Suspect]
     Active Substance: CLOZAPINE
     Dosage: 500 MG IN EVENING
     Route: 048
  11. CLOZAPINE. [Suspect]
     Active Substance: CLOZAPINE
     Dosage: 100 MG IN MORNNING
     Route: 048

REACTIONS (3)
  - Generalised tonic-clonic seizure [Recovered/Resolved]
  - Drug level increased [Unknown]
  - Weight increased [Recovering/Resolving]
